FAERS Safety Report 7901247-X (Version None)
Quarter: 2011Q4

REPORT INFORMATION
  Report Type: 
  Country: None (occurrence: None)
  Receive Date: 20111108
  Receipt Date: 20111031
  Transmission Date: 20120403
  Serious: Yes (Hospitalization, Other)
  Sender: FDA-Public Use
  Company Number: PHHY2011CA93045

PATIENT
  Sex: Female

DRUGS (6)
  1. CLOZARIL [Suspect]
     Indication: SCHIZOPHRENIA, PARANOID TYPE
     Dosage: JUST UNTILL 150 MG PER DAY
     Dates: start: 20110816
  2. RISPERDAL [Concomitant]
     Dosage: UNTIL 5 MG HS
  3. CLOZARIL [Suspect]
     Dosage: 100 MG
     Route: 048
     Dates: start: 20110824, end: 20110902
  4. RISPERDAL [Concomitant]
     Dosage: 4 MG
  5. SEROQUEL [Concomitant]
     Dosage: 550 MG
     Dates: end: 20110901
  6. LORAZEPAM [Concomitant]
     Dosage: 1 MG, TID

REACTIONS (10)
  - COUGH [None]
  - OXYGEN SATURATION DECREASED [None]
  - C-REACTIVE PROTEIN INCREASED [None]
  - BODY TEMPERATURE INCREASED [None]
  - SINUS TACHYCARDIA [None]
  - VIRAL INFECTION [None]
  - GRANULOCYTE COUNT INCREASED [None]
  - WHITE BLOOD CELL COUNT INCREASED [None]
  - DYSPNOEA [None]
  - ASTHENIA [None]
